FAERS Safety Report 8401610-7 (Version None)
Quarter: 2012Q2

REPORT INFORMATION
  Report Type: 
  Country: None (occurrence: None)
  Receive Date: 20120601
  Receipt Date: 20120529
  Transmission Date: 20120825
  Serious: Yes (Other)
  Sender: FDA-Public Use
  Company Number: PHEH2012US003645

PATIENT
  Sex: Female

DRUGS (7)
  1. LEVOTHYROXINE SODIUM [Concomitant]
     Dosage: 75 MG, UNK
     Route: 048
  2. ACIPHEX [Concomitant]
  3. RECLAST [Suspect]
     Indication: OSTEOPOROSIS
     Dosage: UNK UKN, UNK
     Route: 042
     Dates: start: 20120202
  4. VITAMIN D [Concomitant]
  5. LIPITOR [Concomitant]
     Dosage: 40 MG, UNK
     Route: 048
  6. CITRACAL [Concomitant]
     Dosage: UNK UKN, DAILY
     Route: 048
  7. LIBRAX [Concomitant]

REACTIONS (11)
  - HEADACHE [None]
  - EYE SWELLING [None]
  - BALANCE DISORDER [None]
  - EYE INFLAMMATION [None]
  - EYE PAIN [None]
  - CHILLS [None]
  - DIPLOPIA [None]
  - BLOOD PARATHYROID HORMONE INCREASED [None]
  - MALAISE [None]
  - VISION BLURRED [None]
  - INFLUENZA LIKE ILLNESS [None]
